FAERS Safety Report 6758649-7 (Version None)
Quarter: 2010Q2

REPORT INFORMATION
  Report Type: 
  Country: None (occurrence: None)
  Receive Date: 20100607
  Receipt Date: 20100601
  Transmission Date: 20101027
  Serious: Yes (Other)
  Sender: FDA-Public Use
  Company Number: FR-ROCHE-707612

PATIENT

DRUGS (18)
  1. TOCILIZUMAB [Suspect]
     Indication: RHEUMATOID ARTHRITIS
     Route: 065
  2. TOCILIZUMAB [Suspect]
     Dosage: THE PATIENT WAS PREVIOUSLY IN WA18063 STUDY.
     Route: 042
  3. METHOTREXATE [Suspect]
     Indication: RHEUMATOID ARTHRITIS
     Dosage: THE PATIENT WAS PREVIOUSLY IN WA18063 STUDY.
     Route: 065
  4. CELECOXIB [Concomitant]
     Dosage: START DATE: UK 01 2006
     Dates: end: 20060501
  5. DIOSMINE [Concomitant]
     Dates: start: 20081218, end: 20090401
  6. DI-ANTALVIC [Concomitant]
     Dates: start: 20050601, end: 20060301
  7. NISISCO [Concomitant]
     Dates: start: 20030101
  8. ALOPURINOL [Concomitant]
     Dates: start: 20070723
  9. ALOPURINOL [Concomitant]
     Dates: end: 20090601
  10. SIMVASTATIN [Concomitant]
     Dates: start: 20090825
  11. FOLIC ACID [Concomitant]
     Dates: start: 20051001
  12. METHOTREXATE [Concomitant]
     Dates: start: 20050321
  13. ACEBUTOLOL [Concomitant]
  14. FLECAINIDE ACETATE [Concomitant]
     Dates: end: 20071016
  15. FLECAINIDE ACETATE [Concomitant]
  16. ESOMEPRAZOLE [Concomitant]
     Dates: end: 20090401
  17. NITROFURANTOIN [Concomitant]
     Dosage: DRUG: NITROFURANTDINE
  18. CALCIUM CARBONATE [Concomitant]

REACTIONS (1)
  - TRANSIENT ISCHAEMIC ATTACK [None]
